FAERS Safety Report 7787353-1 (Version None)
Quarter: 2011Q3

REPORT INFORMATION
  Report Type: 
  Country: None (occurrence: None)
  Receive Date: 20110929
  Receipt Date: 20110919
  Transmission Date: 20111222
  Serious: Yes (Other)
  Sender: FDA-Public Use
  Company Number: PHHY2011IL83056

PATIENT
  Age: 35 Year
  Sex: Male

DRUGS (2)
  1. DASATINIB [Suspect]
     Dosage: 100 MG, UNK
  2. TASIGNA [Suspect]
     Dosage: 400 MG, DAILY
     Route: 048

REACTIONS (4)
  - PANCYTOPENIA [None]
  - ORAL HERPES [None]
  - RASH [None]
  - DRUG ADMINISTRATION ERROR [None]
